FAERS Safety Report 11892077 (Version 2)
Quarter: 2016Q1

REPORT INFORMATION
  Report Type: Spontaneous
  Country: IT (occurrence: IT)
  Receive Date: 20160106
  Receipt Date: 20160107
  Transmission Date: 20160526
  Serious: Yes (Other)
  Sender: FDA-Public Use
  Company Number: IT-ACTAVIS-2015-29014

PATIENT
  Age: 60 Year
  Sex: Female

DRUGS (2)
  1. PREGABALIN (UNKNOWN) [Suspect]
     Active Substance: PREGABALIN
     Indication: BIPOLAR DISORDER
     Dosage: 225 MG, DAILY
     Route: 065
     Dates: start: 20150801, end: 20151130
  2. QUETIAPINE (UNKNOWN) [Suspect]
     Active Substance: QUETIAPINE
     Indication: BIPOLAR DISORDER
     Dosage: 200 MG, DAILY
     Route: 048
     Dates: start: 20150801

REACTIONS (1)
  - No therapeutic response [Not Recovered/Not Resolved]

NARRATIVE: CASE EVENT DATE: 20150930
